FAERS Safety Report 16133477 (Version 3)
Quarter: 2019Q2

REPORT INFORMATION
  Report Type: Report from Study
  Country: US (occurrence: US)
  Receive Date: 20190329
  Receipt Date: 20190408
  Transmission Date: 20190711
  Serious: Yes (Life-Threatening, Hospitalization, Other)
  Sender: FDA-Public Use
  Company Number: US-ROCHE-2286512

PATIENT
  Age: 67 Year
  Sex: Female
  Weight: 67 kg

DRUGS (14)
  1. METFORMIN [Concomitant]
     Active Substance: METFORMIN HYDROCHLORIDE
  2. EPIRUBICIN [Suspect]
     Active Substance: EPIRUBICIN
     Indication: INVASIVE BREAST CARCINOMA
     Route: 065
  3. CIPROFLOXACIN. [Concomitant]
     Active Substance: CIPROFLOXACIN
  4. TRASTUZUMAB. [Suspect]
     Active Substance: TRASTUZUMAB
     Indication: INVASIVE BREAST CARCINOMA
     Dosage: OVER 90 MIN (LOADING DOSE)?ON DAY 1 OF WEAK 13?DATE OF MOST RECENT DOSE PRIOR TO SAE: 29/OCT/2003(16
     Route: 042
     Dates: start: 20021030
  5. LOSARTAN. [Concomitant]
     Active Substance: LOSARTAN
  6. PROCHLORPERAZINE. [Concomitant]
     Active Substance: PROCHLORPERAZINE
  7. HYDROCHLOROTHIAZIDE. [Concomitant]
     Active Substance: HYDROCHLOROTHIAZIDE
  8. TRASTUZUMAB. [Suspect]
     Active Substance: TRASTUZUMAB
     Dosage: OVER 30 MIN (MAINTENANCE DOSE)?FOR 51 WEAKS STARTING DAY 1 OF WEAK 14
     Route: 042
     Dates: end: 20031029
  9. FLUOROURACIL. [Suspect]
     Active Substance: FLUOROURACIL
     Indication: INVASIVE BREAST CARCINOMA
     Route: 065
  10. CYCLOPHOSPHAMIDE. [Suspect]
     Active Substance: CYCLOPHOSPHAMIDE
     Indication: INVASIVE BREAST CARCINOMA
     Dosage: OVER 30 MIN, ON DAY 1 Q21 DAY, X 4?DATE OF MOST RECENT DOSE PRIOR TO SAE:  09/OCT/2002 (0 MG)
     Route: 042
     Dates: start: 20020807, end: 20021009
  11. DOXORUBICIN HYDROCHLORIDE. [Suspect]
     Active Substance: DOXORUBICIN HYDROCHLORIDE
     Indication: INVASIVE BREAST CARCINOMA
     Dosage: ON DAY 1 Q21 DAYS, X 4?DATE OF MOST RECENT DOSE PRIOR TO SAE:  09/OCT/2002 (0 MG)
     Route: 042
     Dates: start: 20020807, end: 20021009
  12. FLUCONAZOLE. [Concomitant]
     Active Substance: FLUCONAZOLE
  13. PACLITAXEL. [Suspect]
     Active Substance: PACLITAXEL
     Indication: INVASIVE BREAST CARCINOMA
     Dosage: OVER 30 MIN, ON DAY 1 Q21 DAY, X 4?DATE OF MOST RECENT DOSE PRIOR TO SAE: 02/JAN/2003 (164 MG)
     Route: 042
     Dates: start: 20021030, end: 20030102
  14. TAXOTERE [Suspect]
     Active Substance: DOCETAXEL
     Indication: INVASIVE BREAST CARCINOMA
     Route: 065

REACTIONS (3)
  - Cellulitis [Unknown]
  - Leukaemia [Not Recovered/Not Resolved]
  - Febrile neutropenia [Unknown]

NARRATIVE: CASE EVENT DATE: 20180906
